FAERS Safety Report 16833638 (Version 1)
Quarter: 2019Q3

REPORT INFORMATION
  Report Type: Report from Study
  Country: RU (occurrence: RU)
  Receive Date: 20190920
  Receipt Date: 20190920
  Transmission Date: 20191005
  Serious: Yes (Hospitalization)
  Sender: FDA-Public Use
  Company Number: RU-PFIZER INC-2019397985

PATIENT
  Age: 62 Year
  Sex: Female
  Weight: 52 kg

DRUGS (3)
  1. PREDUCTAL [Concomitant]
     Active Substance: TRIMETAZIDINE DIHYDROCHLORIDE
     Indication: ASTHENIA
     Dosage: 35 MG, 2X/DAY
     Route: 048
     Dates: start: 20150102
  2. PALBOCICLIB [Suspect]
     Active Substance: PALBOCICLIB
     Indication: BREAST CANCER
     Dosage: UNK, ONCE DAILY 3 WEEKS ON/1 WEEK OFF, EVERY 28 DAY CYCLE
     Route: 048
     Dates: start: 20140226
  3. LETROZOLE. [Suspect]
     Active Substance: LETROZOLE
     Indication: BREAST CANCER
     Dosage: 2.5 MG, 1X/DAY
     Route: 048
     Dates: start: 20140226

REACTIONS (3)
  - Cataract [Recovered/Resolved]
  - Myopia [Recovered/Resolved]
  - Lens dislocation [Recovered/Resolved]

NARRATIVE: CASE EVENT DATE: 20190808
